FAERS Safety Report 16526206 (Version 2)
Quarter: 2019Q3

REPORT INFORMATION
  Report Type: Spontaneous
  Country: CA (occurrence: CA)
  Receive Date: 20190703
  Receipt Date: 20190710
  Transmission Date: 20191004
  Serious: No
  Sender: FDA-Public Use
  Company Number: CA-PFIZER INC-2019276375

PATIENT
  Age: 10 Year
  Sex: Male

DRUGS (10)
  1. VINCRISTINE SULFATE. [Suspect]
     Active Substance: VINCRISTINE SULFATE
     Indication: BURKITT^S LYMPHOMA STAGE III
     Dosage: 2 MG/M2, CYCLIC, (MAX 2MG) I.V. PUSH ON DAY 1
     Route: 042
  2. CYTARABINE. [Suspect]
     Active Substance: CYTARABINE
     Dosage: 50 MG/M2, CYCLIC, S.C./I.V. PUSH Q12H*10 DOSES ON DAYS 1, 2, 3, 4, 5
  3. METHOTREXATE SODIUM. [Suspect]
     Active Substance: METHOTREXATE SODIUM
     Indication: BURKITT^S LYMPHOMA STAGE III
     Dosage: UNK UNK, CYCLIC
     Route: 037
  4. ETOPOSIDE. [Suspect]
     Active Substance: ETOPOSIDE
     Indication: BURKITT^S LYMPHOMA STAGE III
     Dosage: 150 MG/M2, CYCLIC, I.V. OVER 2 HOURS, DAILY*3 DAYS ON DAYS 1, 2, 3
     Route: 042
  5. PREDNISONE. [Suspect]
     Active Substance: PREDNISONE
     Indication: BURKITT^S LYMPHOMA STAGE III
     Dosage: 30 MG/M2, CYCLIC, P.O.B.I.D.*10 DOSES ON DAYS 1, 2, 3, 4, 5 AND TAPER OVER 3 DAYS
     Route: 048
  6. CYTARABINE. [Suspect]
     Active Substance: CYTARABINE
     Indication: BURKITT^S LYMPHOMA STAGE III
     Dosage: UNK UNK, CYCLIC, 12-30 MG*1 DOSE ON DAY 2
     Route: 039
  7. DOXORUBICIN HCL [Suspect]
     Active Substance: DOXORUBICIN HYDROCHLORIDE
     Indication: BURKITT^S LYMPHOMA STAGE III
     Dosage: 60 MG/M2, CYCLIC, OVER 15 MINUTES ON DAY 2, AFTER FIRST DOSE OF CYCLOPHOSPHAMIDE
     Route: 042
  8. CYCLOPHOSPHAMIDE. [Suspect]
     Active Substance: CYCLOPHOSPHAMIDE
     Indication: BURKITT^S LYMPHOMA STAGE III
     Dosage: 500 MG/M2, CYCLIC, I.V.OVER 60MINUTES, ONCE DAILY*2 DAYS ON DAYS 2 AND 3
     Route: 042
  9. HYDROCORTISONE. [Suspect]
     Active Substance: HYDROCORTISONE
     Indication: BURKITT^S LYMPHOMA STAGE III
     Dosage: UNK, CYCLIC, 6-15 MG*1 DOSE ON DAY 2
     Route: 039
  10. METHOTREXATE SODIUM. [Suspect]
     Active Substance: METHOTREXATE SODIUM
     Dosage: 8000 MG/M2, CYCLIC, OVER 4 HOURS ON DAY 1
     Route: 042

REACTIONS (3)
  - Candida infection [Unknown]
  - Skin disorder [Unknown]
  - Mucosal inflammation [Unknown]
